FAERS Safety Report 7815716 (Version 6)
Quarter: 2014Q1

REPORT INFORMATION
  Report Type: Report from Study
  Country: KR (occurrence: KR)
  Receive Date: 20110216
  Receipt Date: 20140219
  Transmission Date: 20141002
  Serious: Yes (Hospitalization)
  Sender: FDA-Public Use
  Company Number: KR-JNJFOC-20110203378

PATIENT
  Age: 30 Year
  Sex: Male
  Weight: 61 kg

DRUGS (6)
  1. REMICADE [Suspect]
     Indication: CROHN^S DISEASE
     Route: 042
     Dates: start: 20101124
  2. REMICADE [Suspect]
     Indication: CROHN^S DISEASE
     Route: 042
     Dates: start: 20101208
  3. REMICADE [Suspect]
     Indication: CROHN^S DISEASE
     Route: 042
     Dates: start: 20110119, end: 20110119
  4. PENTASA [Concomitant]
     Indication: CROHN^S DISEASE
     Route: 048
     Dates: start: 20090804
  5. FEROBA [Concomitant]
     Indication: HAEMATOCHEZIA
     Route: 048
     Dates: start: 20110119
  6. FEROBA [Concomitant]
     Indication: IRON DEFICIENCY ANAEMIA
     Route: 048
     Dates: start: 20110119

REACTIONS (2)
  - Disseminated tuberculosis [Recovered/Resolved]
  - Iron deficiency anaemia [Unknown]
